FAERS Safety Report 10236286 (Version 1)
Quarter: 2014Q1

REPORT INFORMATION
  Report Type: Spontaneous
  Country: US (occurrence: None)
  Receive Date: 20140306
  Receipt Date: 20140306
  Transmission Date: 20141002
  Serious: Yes (Other)
  Sender: FDA-Public Use
  Company Number: 163-21880-13103162

PATIENT
  Age: 62 Year
  Sex: Male
  Weight: 88.45 kg

DRUGS (6)
  1. REVLIMID(LENALIDOMIDE)(CAPSULES) [Suspect]
     Indication: CHRONIC LYMPHOCYTIC LEUKAEMIA
     Dosage: 5 MG, 21 IN 28 D, PO
     Route: 048
     Dates: start: 20130527
  2. CRESTOR(ROSUVASTATIN)(UKNOWN) [Concomitant]
  3. ACYCLOVIR(ACICLOVIR)(UKNOWN) [Concomitant]
  4. ALLOPURINOL(ALLOPURINOL)(UKNOWN) [Concomitant]
  5. AMBIEN(ZOLPIDEM TARTRATE)(UKNOWN) [Concomitant]
  6. ASPIRIN(ACETYLSALICYCLIC ACID)(UKNOWN) [Concomitant]

REACTIONS (2)
  - Haemolytic anaemia [None]
  - Drug ineffective [None]
